FAERS Safety Report 4615839-7 (Version None)
Quarter: 2005Q1

REPORT INFORMATION
  Report Type: 
  Country: None (occurrence: None)
  Receive Date: 20050321
  Receipt Date: 20050304
  Transmission Date: 20050727
  Serious: Yes (Other)
  Sender: FDA-Public Use
  Company Number: TRP_0022_2004

PATIENT
  Age: 43 Year
  Sex: Female

DRUGS (2)
  1. RIBASPHERE [Suspect]
  2. PEGASYS/PEGINTERFERON ALFA-2A/ROCHE [Suspect]

REACTIONS (18)
  - BLOOD GLUCOSE DECREASED [None]
  - CHEST PAIN [None]
  - CONDITION AGGRAVATED [None]
  - CONFUSIONAL STATE [None]
  - DIZZINESS [None]
  - DRY SKIN [None]
  - DYSPNOEA EXERTIONAL [None]
  - GASTROENTERITIS VIRAL [None]
  - HAEMOGLOBIN DECREASED [None]
  - HEADACHE [None]
  - HUNGER [None]
  - HYPOTRICHOSIS [None]
  - IRRITABILITY [None]
  - PRURITUS [None]
  - RASH [None]
  - RHEUMATOID ARTHRITIS [None]
  - TREMOR [None]
  - WHITE BLOOD CELL COUNT DECREASED [None]
